FAERS Safety Report 25347634 (Version 2)
Quarter: 2025Q3

REPORT INFORMATION
  Report Type: Spontaneous
  Country: TH (occurrence: TH)
  Receive Date: 20250522
  Receipt Date: 20250707
  Transmission Date: 20251021
  Serious: Yes (Other)
  Sender: MYLAN
  Company Number: TH-MYLANLABS-2025M1043451

PATIENT
  Age: 12 Year
  Sex: Male
  Weight: 37.3 kg

DRUGS (3)
  1. AZELASTINE HYDROCHLORIDE\FLUTICASONE PROPIONATE [Suspect]
     Active Substance: AZELASTINE HYDROCHLORIDE\FLUTICASONE PROPIONATE
     Indication: Conjunctivitis allergic
     Dosage: UNK, QD
     Dates: start: 20220202
  2. MONTELUKAST [Suspect]
     Active Substance: MONTELUKAST
     Indication: Conjunctivitis allergic
     Dosage: 5 MILLIGRAM, QD
     Dates: start: 20211222, end: 20240418
  3. OLOPATADINE [Suspect]
     Active Substance: OLOPATADINE
     Indication: Conjunctivitis allergic
     Dosage: 0.2 PERCENT, QD
     Dates: start: 20211222

REACTIONS (1)
  - Drug ineffective [Unknown]
